FAERS Safety Report 12352224 (Version 1)
Quarter: 2016Q2

REPORT INFORMATION
  Report Type: Report from Study
  Country: CA (occurrence: CA)
  Receive Date: 20160510
  Receipt Date: 20160510
  Transmission Date: 20160815
  Serious: Yes (Other)
  Sender: FDA-Public Use
  Company Number: PHHY2014CA065272

PATIENT
  Age: 54 Year
  Sex: Male

DRUGS (2)
  1. SANDOSTATIN LAR DEPOT [Suspect]
     Active Substance: OCTREOTIDE ACETATE
     Indication: ACROMEGALY
     Dosage: 20 MG, QMO (EVERY 4 WEEKS)
     Route: 030
     Dates: start: 20140519
  2. SANDOSTATIN LAR DEPOT [Suspect]
     Active Substance: OCTREOTIDE ACETATE
     Indication: NEUROENDOCRINE TUMOUR

REACTIONS (8)
  - Needle issue [Unknown]
  - Confusional state [Unknown]
  - Muscle strain [Unknown]
  - Myalgia [Unknown]
  - Body temperature decreased [Unknown]
  - Blood pressure increased [Unknown]
  - Nervousness [Unknown]
  - Injection site pain [Unknown]

NARRATIVE: CASE EVENT DATE: 20140519
